FAERS Safety Report 4999518-2 (Version None)
Quarter: 2006Q2

REPORT INFORMATION
  Report Type: 
  Country: None (occurrence: None)
  Receive Date: 20060509
  Receipt Date: 20060509
  Transmission Date: 20061013
  Serious: No
  Sender: FDA-Public Use
  Company Number: None

PATIENT
  Age: 89 Year
  Sex: Female
  Weight: 73.0291 kg

DRUGS (7)
  1. LISINOPRIL [Suspect]
     Indication: CARDIOVASCULAR DISORDER
     Dosage: 1 PO BID
     Route: 048
     Dates: start: 19890401
  2. LISINOPRIL [Suspect]
     Indication: HYPERTENSION
     Dosage: 1 PO BID
     Route: 048
     Dates: start: 19890401
  3. LISINOPRIL [Suspect]
     Indication: CARDIOVASCULAR DISORDER
     Dosage: 1 PO BID
     Route: 048
     Dates: start: 20060101
  4. LISINOPRIL [Suspect]
     Indication: HYPERTENSION
     Dosage: 1 PO BID
     Route: 048
     Dates: start: 20060101
  5. WARFARIN SODIUM [Concomitant]
  6. LEVOTHYROXINE SODIUM [Concomitant]
  7. HYDROCHLOROTHIAZIDE [Concomitant]

REACTIONS (1)
  - VISUAL ACUITY REDUCED [None]
